FAERS Safety Report 7761325-5 (Version None)
Quarter: 2011Q3

REPORT INFORMATION
  Report Type: 
  Country: None (occurrence: None)
  Receive Date: 20110920
  Receipt Date: 20110916
  Transmission Date: 20111222
  Serious: Yes (Life-Threatening, Other)
  Sender: FDA-Public Use
  Company Number: US-PFIZER INC-2011177490

PATIENT
  Sex: Female

DRUGS (1)
  1. PROCARDIA XL [Suspect]
     Dosage: UNK MG, UNK

REACTIONS (1)
  - HYPERSENSITIVITY [None]
